FAERS Safety Report 8573361-X (Version None)
Quarter: 2012Q2

REPORT INFORMATION
  Report Type: 
  Country: None (occurrence: None)
  Receive Date: 20120423
  Receipt Date: 20110601
  Transmission Date: 20120825
  Serious: Yes (Hospitalization)
  Sender: FDA-Public Use
  Company Number: FK201101102

PATIENT
  Age: 74 Year
  Sex: Female
  Weight: 93 kg

DRUGS (1)
  1. HEPARIN SODIUM [Suspect]
     Indication: ANTICOAGULANT THERAPY
     Dosage: 7000 USP UNITS, IVP : 500 USP UNITS, PER HOUR, D/C DURING LAST HOUR, INTRAVENOUS (NOT OTHERWISE SPEC
     Route: 042

REACTIONS (1)
  - CATHETER SITE HAEMORRHAGE [None]
